FAERS Safety Report 9817513 (Version 1)
Quarter: 2014Q1

REPORT INFORMATION
  Report Type: Spontaneous
  Country: US (occurrence: US)
  Receive Date: 20140115
  Receipt Date: 20140115
  Transmission Date: 20141002
  Serious: Yes (Other)
  Sender: FDA-Public Use
  Company Number: US-BRISTOL-MYERS SQUIBB COMPANY-19974906

PATIENT
  Sex: Male

DRUGS (3)
  1. SUSTIVA CAPS [Suspect]
     Indication: HEPATITIS B
     Route: 065
  2. VIDEX [Suspect]
     Indication: HEPATITIS B
     Route: 065
  3. VIREAD [Suspect]
     Indication: HEPATITIS B
     Route: 065

REACTIONS (3)
  - Hepatitis B DNA increased [Unknown]
  - Aspartate aminotransferase increased [Unknown]
  - Alanine aminotransferase increased [Unknown]
